FAERS Safety Report 23267147 (Version 1)
Quarter: 2023Q4

REPORT INFORMATION
  Report Type: Spontaneous
  Country: JP (occurrence: JP)
  Receive Date: 20231206
  Receipt Date: 20231206
  Transmission Date: 20240110
  Serious: Yes (Other)
  Sender: FDA-Public Use
  Company Number: JP-PFIZER INC-202300418791

PATIENT

DRUGS (2)
  1. METHOTREXATE SODIUM [Suspect]
     Active Substance: METHOTREXATE SODIUM
     Indication: Lymphoma
  2. ISOVORIN [Suspect]
     Active Substance: LEUCOVORIN CALCIUM
     Indication: Lymphoma

REACTIONS (2)
  - Renal impairment [Unknown]
  - Urinary retention [Unknown]
